FAERS Safety Report 8983023 (Version 2)
Quarter: 2013Q1

REPORT INFORMATION
  Report Type: Report from Study
  Country: US (occurrence: US)
  Receive Date: 20121221
  Receipt Date: 20130111
  Transmission Date: 20140127
  Serious: Yes (Other)
  Sender: FDA-Public Use
  Company Number: US-ABBOTT-12P-163-1024533-00

PATIENT
  Age: 30 Year
  Sex: Female

DRUGS (3)
  1. HUMIRA [Suspect]
     Indication: PRODUCT USED FOR UNKNOWN INDICATION
     Dates: start: 201112
  2. PROMETHAZINE [Concomitant]
     Indication: PROCEDURAL NAUSEA
  3. TRAMADOL [Concomitant]
     Indication: INJECTION SITE PAIN

REACTIONS (3)
  - Abortion spontaneous [Unknown]
  - Procedural nausea [Recovered/Resolved]
  - Injection site pain [Recovered/Resolved]
